FAERS Safety Report 9919777 (Version 3)
Quarter: 2015Q1

REPORT INFORMATION
  Report Type: Spontaneous
  Country: US (occurrence: US)
  Receive Date: 20140224
  Receipt Date: 20150220
  Transmission Date: 20150721
  Serious: No
  Sender: FDA-Public Use
  Company Number: US-PFIZER INC-2014049097

PATIENT
  Age: 69 Year
  Sex: Female
  Weight: 61 kg

DRUGS (4)
  1. PREMARIN [Suspect]
     Active Substance: ESTROGENS, CONJUGATED
     Indication: VULVOVAGINAL DRYNESS
  2. PREMARIN [Suspect]
     Active Substance: ESTROGENS, CONJUGATED
     Indication: POSTMENOPAUSE
     Dosage: 1.25 MG, 1X/DAY
     Route: 048
     Dates: start: 1994
  3. PREMARIN [Suspect]
     Active Substance: ESTROGENS, CONJUGATED
     Indication: VAGINAL DISORDER
     Dosage: 0.625 G, 1/ 2 APPLICATOR WEEKLY X2
     Route: 067
     Dates: start: 2012
  4. TRIBENZOR [Concomitant]
     Active Substance: AMLODIPINE BESYLATE\HYDROCHLOROTHIAZIDE\OLMESARTAN MEDOXOMIL
     Indication: HYPERTENSION
     Dosage: OLMESARTAN MEDOXOMIL 40MG / AMLODIPINE 5MG / HYDROCHLOROTHIAZIDE 12.5MG, DAILY

REACTIONS (1)
  - Drug ineffective [Unknown]
